FAERS Safety Report 9663967 (Version 1)
Quarter: 2013Q4

REPORT INFORMATION
  Report Type: Spontaneous
  Country: BR (occurrence: BR)
  Receive Date: 20131101
  Receipt Date: 20131101
  Transmission Date: 20140711
  Serious: Yes (Hospitalization, Other)
  Sender: FDA-Public Use
  Company Number: BR-009507513-1310BRA015254

PATIENT
  Age: 53 Year
  Sex: Male

DRUGS (2)
  1. SAPHRIS [Suspect]
     Dosage: UNK
     Route: 060
     Dates: start: 201304
  2. SEROQUEL [Concomitant]
     Dosage: UNK
     Dates: start: 201304

REACTIONS (1)
  - Pancreatitis [Recovered/Resolved]
